FAERS Safety Report 8067024-7 (Version None)
Quarter: 2012Q1

REPORT INFORMATION
  Report Type: 
  Country: None (occurrence: None)
  Receive Date: 20120124
  Receipt Date: 20120120
  Transmission Date: 20120608
  Serious: Yes (Death, Hospitalization)
  Sender: FDA-Public Use
  Company Number: US-JNJFOC-20100800033

PATIENT
  Age: 9 Decade
  Sex: Male
  Weight: 88.45 kg

DRUGS (16)
  1. ACETAMINOPHEN [Concomitant]
     Indication: PAIN MANAGEMENT
     Route: 048
  2. FOSAMAX [Concomitant]
     Indication: BONE DISORDER
     Route: 065
  3. OMEGA FISH OILS [Concomitant]
     Indication: BLOOD CHOLESTEROL
     Route: 065
  4. CITRUCEL [Concomitant]
     Indication: CONSTIPATION
     Route: 048
  5. NORVASC [Concomitant]
     Indication: BLOOD PRESSURE
     Route: 048
  6. NAMENDA [Concomitant]
     Indication: DEMENTIA ALZHEIMER'S TYPE
     Route: 048
  7. RISPERDAL [Suspect]
     Indication: AGITATION
     Route: 048
  8. ASPIRIN [Concomitant]
     Indication: PAIN MANAGEMENT
     Route: 065
  9. RISPERDAL [Suspect]
     Indication: DEMENTIA WITH LEWY BODIES
     Route: 048
  10. RISPERDAL [Suspect]
     Route: 048
     Dates: start: 20090101
  11. UNKNOWN MEDICATION [Concomitant]
     Indication: ILL-DEFINED DISORDER
     Route: 048
  12. ZANTAC [Concomitant]
     Indication: GASTRIC DISORDER
     Route: 048
  13. COLACE [Concomitant]
     Indication: CONSTIPATION
     Route: 048
  14. ARICEPT [Concomitant]
     Indication: DEMENTIA
     Route: 048
  15. RISPERDAL [Suspect]
     Route: 048
     Dates: start: 20090101
  16. LUTEIN [Concomitant]
     Indication: EYE DISORDER
     Route: 065

REACTIONS (11)
  - DEMENTIA [None]
  - AGGRESSION [None]
  - BODY TEMPERATURE DECREASED [None]
  - APHAGIA [None]
  - OXYGEN SATURATION DECREASED [None]
  - SOMNOLENCE [None]
  - ASPIRATION [None]
  - LETHARGY [None]
  - PNEUMONIA ASPIRATION [None]
  - DEHYDRATION [None]
  - LOSS OF CONSCIOUSNESS [None]
